FAERS Safety Report 7780689-X (Version None)
Quarter: 2011Q3

REPORT INFORMATION
  Report Type: 
  Country: None (occurrence: None)
  Receive Date: 20110927
  Receipt Date: 20110323
  Transmission Date: 20111222
  Serious: No
  Sender: FDA-Public Use
  Company Number: US-BRISTOL-MYERS SQUIBB COMPANY-15630726

PATIENT
  Age: 68 Year
  Sex: Female

DRUGS (5)
  1. NEXIUM [Concomitant]
  2. LIPITOR [Concomitant]
  3. PLAVIX [Concomitant]
  4. AVAPRO [Suspect]
     Indication: HYPERTENSION
  5. HYDROCHLOROTHIAZIDE [Concomitant]

REACTIONS (2)
  - EAR DISCOMFORT [None]
  - HEART RATE INCREASED [None]
